FAERS Safety Report 10234106 (Version 1)
Quarter: 2014Q1

REPORT INFORMATION
  Report Type: Spontaneous
  Country: US (occurrence: None)
  Receive Date: 20140306
  Receipt Date: 20140306
  Transmission Date: 20141002
  Serious: Yes (Other)
  Sender: FDA-Public Use
  Company Number: 163-21880-13111218

PATIENT
  Age: 73 Year
  Sex: Male
  Weight: 69.4 kg

DRUGS (14)
  1. REVLIMID (LENALIDOMIDE) (10 MILLIGRAM, CAPSULES) [Suspect]
     Indication: PLASMA CELL MYELOMA
     Route: 048
     Dates: start: 201308
  2. CALCIUM + D (CALCIUM D3 ^STADA^) [Concomitant]
  3. FISH OIL CONCENTRATE (FISH OIL) [Concomitant]
  4. HYDROXYZINE PAMOATE (HYDROXYZINE EMBONATE) [Concomitant]
  5. PANTOPRAZOLE SODIUM (PANTOPRAZOLE SODIUM) [Concomitant]
  6. PLAVIX (CLOPIDOGREL SULFATE) [Concomitant]
  7. POTASSIUM CHLORIDE (POTASSIUM CHLORIDE) [Concomitant]
  8. POTASSIUM (POTASSIUM) [Concomitant]
  9. SIMVASTATIN (SIMVASTATIN) [Concomitant]
  10. VITAMIN B (VITAMIN B) [Concomitant]
  11. VITAMIN C (ASCORBIC ACID) [Concomitant]
  12. ZOMETA (ZOLEDRONIC ACID) [Concomitant]
  13. FLEXERIL (CYCLOBENAZPRINE HYDROCHLORIDE) [Concomitant]
  14. DEXAMETHASONE (DEXAMETHASONE) [Concomitant]

REACTIONS (3)
  - Squamous cell carcinoma of skin [None]
  - Plasma cell myeloma [None]
  - Pain [None]
